FAERS Safety Report 12153731 (Version 2)
Quarter: 2016Q2

REPORT INFORMATION
  Report Type: Spontaneous
  Country: US (occurrence: US)
  Receive Date: 20160307
  Receipt Date: 20160415
  Transmission Date: 20160815
  Serious: Yes (Other)
  Sender: FDA-Public Use
  Company Number: US-AMGEN-USASP2016025485

PATIENT
  Age: 44 Year
  Sex: Male

DRUGS (2)
  1. BENICAR [Concomitant]
     Active Substance: OLMESARTAN MEDOXOMIL
     Dosage: UNK
  2. ENBREL [Suspect]
     Active Substance: ETANERCEPT
     Indication: RHEUMATOID ARTHRITIS
     Dosage: 50 MG, QWK
     Route: 058
     Dates: start: 201511

REACTIONS (14)
  - Prostatomegaly [Unknown]
  - Fatigue [Unknown]
  - Psoriasis [Unknown]
  - Red blood cell count increased [Unknown]
  - Blood pressure abnormal [Unknown]
  - Gastrooesophageal reflux disease [Unknown]
  - Aspartate aminotransferase increased [Unknown]
  - Urinary tract infection [Unknown]
  - Prostate infection [Unknown]
  - Palpitations [Unknown]
  - Terminal dribbling [Unknown]
  - Erectile dysfunction [Unknown]
  - Chest discomfort [Unknown]
  - Nasopharyngitis [Unknown]
